FAERS Safety Report 10392863 (Version 8)
Quarter: 2016Q3

REPORT INFORMATION
  Report Type: Spontaneous
  Country: US (occurrence: US)
  Receive Date: 20140819
  Receipt Date: 20160728
  Transmission Date: 20161109
  Serious: Yes (Hospitalization, Other)
  Sender: FDA-Public Use
  Company Number: US-009507513-1408USA005658

PATIENT
  Sex: Female
  Weight: 48.53 kg

DRUGS (7)
  1. FOSAMAX [Suspect]
     Active Substance: ALENDRONATE SODIUM
     Dosage: 70 MG, QW
     Route: 048
     Dates: start: 20061120, end: 20071119
  2. SYNTHROID [Concomitant]
     Active Substance: LEVOTHYROXINE SODIUM
     Indication: HYPOTHYROIDISM
     Dosage: 0.112 MG, QD
     Route: 048
     Dates: start: 1984
  3. FOSAMAX [Suspect]
     Active Substance: ALENDRONATE SODIUM
     Indication: OSTEOPOROSIS
     Dosage: UNK
     Route: 048
     Dates: start: 199509
  4. FOSAMAX PLUS D [Suspect]
     Active Substance: ALENDRONATE SODIUM\CHOLECALCIFEROL
     Dosage: 70/2800 QW
     Route: 048
     Dates: start: 201011, end: 2012
  5. VITAMINS (UNSPECIFIED) [Concomitant]
     Active Substance: VITAMINS
     Indication: PRODUCT USED FOR UNKNOWN INDICATION
     Dosage: 1 TABLET, QD
     Route: 065
     Dates: start: 1994
  6. FOSAMAX PLUS D [Suspect]
     Active Substance: ALENDRONATE SODIUM\CHOLECALCIFEROL
     Indication: OSTEOPOROSIS
     Dosage: 70/2800  MG QW
     Route: 048
     Dates: start: 20071219, end: 201002
  7. ALENDRONATE SODIUM. [Suspect]
     Active Substance: ALENDRONATE SODIUM
     Indication: OSTEOPOROSIS
     Dosage: 70 MG, QW
     Route: 048
     Dates: start: 201002, end: 201011

REACTIONS (24)
  - Calcium deficiency [Unknown]
  - Scoliosis [Unknown]
  - Migraine with aura [Unknown]
  - Varicella [Unknown]
  - Fall [Unknown]
  - Packed red blood cell transfusion [Unknown]
  - Blood thyroid stimulating hormone increased [Unknown]
  - Breast cancer [Unknown]
  - Sacroiliitis [Recovering/Resolving]
  - Jaw disorder [Unknown]
  - Seasonal allergy [Unknown]
  - Vertigo [Unknown]
  - Hip arthroplasty [Unknown]
  - Joint stiffness [Unknown]
  - Facial paralysis [Unknown]
  - Spinal osteoarthritis [Unknown]
  - Arthritis [Unknown]
  - Breast cancer [Unknown]
  - Femur fracture [Recovering/Resolving]
  - Radiotherapy [Unknown]
  - Hyperlipidaemia [Unknown]
  - Body height decreased [Unknown]
  - Dental prosthesis placement [Unknown]
  - Pain in extremity [Unknown]

NARRATIVE: CASE EVENT DATE: 1997
